FAERS Safety Report 8340370 (Version 20)
Quarter: 2012Q4

REPORT INFORMATION
  Report Type: 
  Country: GB (occurrence: GB)
  Receive Date: 20120117
  Receipt Date: 20120927
  Transmission Date: 20130627
  Serious: Yes (Life-Threatening, Other)
  Sender: FDA-Public Use
  Company Number: PHFR2012GB000641

PATIENT
  Age: 49 Year
  Sex: Female

DRUGS (6)
  1. CLOZARIL [Suspect]
     Dosage: 75 mg
     Route: 048
     Dates: start: 20120112, end: 20120117
  2. CLOZARIL [Suspect]
     Dosage: 650 mg, QID
     Route: 048
  3. CLOZARIL [Suspect]
     Dosage: 25 mg
     Route: 048
  4. ZISPIN [Suspect]
     Indication: DEPRESSIVE SYMPTOM
     Dosage: 45 mg, UNK
     Route: 048
     Dates: start: 2006, end: 20120121
  5. TOPIRAMATE [Suspect]
     Indication: PSYCHOTIC DISORDER
     Dosage: 300 mg, QD
     Route: 048
     Dates: start: 2007, end: 20120121
  6. CLOZARIL [Suspect]
     Indication: SCHIZOPHRENIA
     Dosage: 650 mg
     Route: 048
     Dates: start: 20060815, end: 20120109

REACTIONS (10)
  - Road traffic accident [Recovered/Resolved]
  - Tooth infection [Recovered/Resolved]
  - Toothache [Recovered/Resolved]
  - Injury [Unknown]
  - Scratch [Unknown]
  - Neutropenia [Recovered/Resolved]
  - Neutrophil count decreased [Recovered/Resolved]
  - White blood cell count decreased [Recovered/Resolved]
  - Eosinophil count decreased [Recovered/Resolved]
  - Platelet count decreased [Recovered/Resolved]
